FAERS Safety Report 20773554 (Version 3)
Quarter: 2022Q2

REPORT INFORMATION
  Report Type: Report from Study
  Country: EG (occurrence: EG)
  Receive Date: 20220502
  Receipt Date: 20220531
  Transmission Date: 20220721
  Serious: Yes (Other)
  Sender: FDA-Public Use
  Company Number: EG-NOVARTISPH-NVSC2022EG099925

PATIENT
  Sex: Male

DRUGS (2)
  1. TASIGNA [Suspect]
     Active Substance: NILOTINIB
     Indication: Chronic myeloid leukaemia
     Dosage: 800 MG, QD (4 CAPS/DAY)
     Route: 048
     Dates: start: 20220317, end: 20220401
  2. TASIGNA [Suspect]
     Active Substance: NILOTINIB
     Dosage: 600 MG, QD (3 CAPS/DAY)
     Route: 048
     Dates: start: 20220402

REACTIONS (4)
  - Muscle strain [Recovered/Resolved]
  - Pain in extremity [Recovered/Resolved]
  - Gastrointestinal motility disorder [Recovered/Resolved]
  - Ocular hyperaemia [Not Recovered/Not Resolved]
